FAERS Safety Report 15393217 (Version 1)
Quarter: 2018Q3

REPORT INFORMATION
  Report Type: Spontaneous
  Country: FR (occurrence: FR)
  Receive Date: 20180917
  Receipt Date: 20180917
  Transmission Date: 20181010
  Serious: Yes (Other)
  Sender: FDA-Public Use
  Company Number: FR-MYLANLABS-2018M1067824

PATIENT

DRUGS (4)
  1. CISPLATIN. [Suspect]
     Active Substance: CISPLATIN
     Indication: GLIOMA
     Dosage: 20 MG/M2, UNK
     Route: 041
  2. FOLINIC ACID [Suspect]
     Active Substance: LEUCOVORIN
     Indication: GLIOMA
     Dosage: 60 MG/M2, QD,NUMBER OF SEPARATE DOSAGES: 4
     Route: 041
  3. METHOTREXATE. [Suspect]
     Active Substance: METHOTREXATE
     Indication: GLIOMA
     Dosage: 12000 MG/M2, UNK
     Route: 041
  4. BICNU [Suspect]
     Active Substance: CARMUSTINE
     Indication: GLIOMA
     Dosage: 20 MG/M2, UNK
     Route: 041

REACTIONS (2)
  - Sepsis [Unknown]
  - Product use in unapproved indication [Unknown]
